FAERS Safety Report 17550930 (Version 1)
Quarter: 2020Q1

REPORT INFORMATION
  Report Type: Spontaneous
  Country: US (occurrence: US)
  Receive Date: 20200317
  Receipt Date: 20200317
  Transmission Date: 20200409
  Serious: No
  Sender: FDA-Public Use
  Company Number: US-EYEVANCE PHARMACEUTICALS-2019EYE00047

PATIENT
  Sex: Female

DRUGS (3)
  1. FLUOROMETHOLONE. [Suspect]
     Active Substance: FLUOROMETHOLONE
  2. AZELASTINE. [Suspect]
     Active Substance: AZELASTINE HYDROCHLORIDE
     Dosage: UNK
     Dates: start: 20171012, end: 20171020
  3. CROMOLYN [Suspect]
     Active Substance: CROMOLYN
     Dosage: UNK
     Dates: start: 20170818, end: 20170829

REACTIONS (1)
  - Treatment failure [Unknown]
